FAERS Safety Report 20190107 (Version 4)
Quarter: 2024Q1

REPORT INFORMATION
  Report Type: Spontaneous
  Country: DE (occurrence: DE)
  Receive Date: 20211215
  Receipt Date: 20240325
  Transmission Date: 20240410
  Serious: Yes (Other)
  Sender: FDA-Public Use
  Company Number: DE-BRISTOL-MYERS SQUIBB COMPANY-BMS-2021-059292

PATIENT
  Age: 49 Year
  Sex: Female

DRUGS (7)
  1. CLOBAZAM [Suspect]
     Active Substance: CLOBAZAM
     Indication: Chorea-acanthocytosis
     Dosage: 2 X 5 MILLIGRAM,QD
     Route: 065
  2. VALPROATE SODIUM [Suspect]
     Active Substance: VALPROATE SODIUM
     Indication: Chorea-acanthocytosis
     Dosage: 2 X 1000 MILLIGRAM,QD
     Route: 065
  3. LEVETIRACETAM [Suspect]
     Active Substance: LEVETIRACETAM
     Indication: Chorea-acanthocytosis
     Dosage: 2 X 2000 MILLIGRAM,QD
     Route: 065
  4. ZONISAMIDE [Suspect]
     Active Substance: ZONISAMIDE
     Indication: Chorea-acanthocytosis
     Dosage: 2 X 100 MILLIGRAM,QD
     Route: 065
  5. DASATINIB [Suspect]
     Active Substance: DASATINIB
     Indication: Chronic myeloid leukaemia
     Dosage: 100 MG, QD
     Route: 048
  6. DASATINIB [Suspect]
     Active Substance: DASATINIB
     Indication: Chorea-acanthocytosis
  7. VITAMIN D NOS [Concomitant]
     Active Substance: VITAMIN D NOS
     Indication: Product used for unknown indication
     Dosage: UNK
     Route: 065

REACTIONS (6)
  - Frequent bowel movements [Unknown]
  - Haematocrit decreased [Recovered/Resolved]
  - Alopecia [Unknown]
  - Acne [Unknown]
  - Thrombocytopenia [Recovered/Resolved]
  - Red blood cell count decreased [Recovered/Resolved]
